FAERS Safety Report 18910568 (Version 2)
Quarter: 2021Q2

REPORT INFORMATION
  Report Type: Spontaneous
  Country: US (occurrence: US)
  Receive Date: 20210218
  Receipt Date: 20210504
  Transmission Date: 20210717
  Serious: No
  Sender: FDA-Public Use
  Company Number: US-TAKEDA-2021TUS008286

PATIENT
  Sex: Female
  Weight: 107 kg

DRUGS (1)
  1. ENTYVIO [Suspect]
     Active Substance: VEDOLIZUMAB
     Indication: COLITIS ULCERATIVE
     Dosage: 300 MILLIGRAM
     Route: 042
     Dates: start: 20200918

REACTIONS (4)
  - Pruritus [Unknown]
  - Eye pruritus [Unknown]
  - Paraesthesia [Unknown]
  - Swelling face [Unknown]
